APPROVED DRUG PRODUCT: DOXAZOSIN MESYLATE
Active Ingredient: DOXAZOSIN MESYLATE
Strength: EQ 4MG BASE
Dosage Form/Route: TABLET;ORAL
Application: A075750 | Product #003
Applicant: PLIVA INC
Approved: Jun 8, 2001 | RLD: No | RS: No | Type: DISCN